FAERS Safety Report 7481674-8 (Version None)
Quarter: 2011Q2

REPORT INFORMATION
  Report Type: 
  Country: None (occurrence: None)
  Receive Date: 20110516
  Receipt Date: 20110502
  Transmission Date: 20111010
  Serious: Yes (Hospitalization)
  Sender: FDA-Public Use
  Company Number: US-JNJFOC-20110403893

PATIENT
  Sex: Female
  Weight: 64.8 kg

DRUGS (5)
  1. MESALAMINE [Concomitant]
     Route: 048
  2. CYPROHEPTADINE HCL [Concomitant]
  3. PRILOSEC [Concomitant]
  4. MELPHALAN HYDROCHLORIDE [Concomitant]
  5. INFLIXIMAB, RECOMBINANT [Suspect]
     Indication: CROHN'S DISEASE
     Route: 042

REACTIONS (1)
  - CROHN'S DISEASE [None]
